FAERS Safety Report 6103845-5 (Version None)
Quarter: 2009Q1

REPORT INFORMATION
  Report Type: 
  Country: None (occurrence: None)
  Receive Date: 20090227
  Receipt Date: 20080421
  Transmission Date: 20090719
  Serious: Yes (Other)
  Sender: FDA-Public Use
  Company Number: 537362

PATIENT
  Sex: Male
  Weight: 113.4 kg

DRUGS (11)
  1. ACCUTANE [Suspect]
     Indication: ACNE CYSTIC
     Dates: start: 20030313, end: 20030903
  2. LOPID [Concomitant]
  3. HYZAAR [Concomitant]
  4. HYTRIN [Concomitant]
  5. NORVASC [Concomitant]
  6. ALLOPURINOL [Concomitant]
  7. UNIPHYL [Concomitant]
  8. QVAR 40 [Concomitant]
  9. ALLEGRA [Concomitant]
  10. NASACORT [Concomitant]
  11. PEPCID [Concomitant]

REACTIONS (16)
  - ARTHRALGIA [None]
  - COLITIS [None]
  - CROHN'S DISEASE [None]
  - DRY EYE [None]
  - DRY SKIN [None]
  - EMOTIONAL DISTRESS [None]
  - EPISTAXIS [None]
  - HEADACHE [None]
  - IMPAIRED HEALING [None]
  - INFLAMMATORY BOWEL DISEASE [None]
  - LEUKOPENIA [None]
  - LIP DRY [None]
  - MYALGIA [None]
  - PROCTITIS [None]
  - PROCTITIS ULCERATIVE [None]
  - SKIN FRAGILITY [None]
